FAERS Safety Report 5532802-2 (Version None)
Quarter: 2007Q4

REPORT INFORMATION
  Report Type: 
  Country: None (occurrence: None)
  Receive Date: 20071204
  Receipt Date: 20071129
  Transmission Date: 20080405
  Serious: Yes (Life-Threatening)
  Sender: FDA-Public Use
  Company Number: DE-BRISTOL-MYERS SQUIBB COMPANY-13992391

PATIENT
  Age: 73 Year
  Sex: Male

DRUGS (8)
  1. CETUXIMAB [Suspect]
     Indication: COLORECTAL CANCER METASTATIC
     Dosage: FIRST INFUSION ON 09AUG07 AND MOST RECENT INFUSION ON 19-NOV-2007.
     Route: 041
     Dates: start: 20070809
  2. OXALIPLATIN [Suspect]
     Indication: COLORECTAL CANCER METASTATIC
     Dosage: FIRST INFUSION ON 09AUG07 AND MOST RECENT INFUSION ON 19-NOV-2007.
     Route: 042
     Dates: start: 20070809
  3. FLUOROURACIL [Suspect]
     Indication: COLORECTAL CANCER METASTATIC
     Dosage: FIRST INFUSION ON 09AUG07 AND MOST RECENT INFUSION ON 19-NOV-2007.
     Route: 040
     Dates: start: 20070809
  4. FOLINIC ACID [Suspect]
     Indication: COLORECTAL CANCER METASTATIC
     Dosage: FIRST INFUSION ON 09AUG07 AND MOST RECENT INFUSION ON 19-NOV-2007.
     Route: 042
     Dates: start: 20070809
  5. HYDROCHLOROTHIAZIDE [Suspect]
     Route: 048
  6. GRANISETRON [Concomitant]
     Route: 048
  7. DEXAMETHASONE TAB [Concomitant]
     Route: 048
  8. METOHEXAL SUCC [Concomitant]
     Route: 048

REACTIONS (2)
  - EYELID PTOSIS [None]
  - HYPOKALAEMIA [None]
